FAERS Safety Report 10581971 (Version 2)
Quarter: 2014Q4

REPORT INFORMATION
  Report Type: Spontaneous
  Country: US (occurrence: US)
  Receive Date: 20141113
  Receipt Date: 20141204
  Transmission Date: 20150529
  Serious: No
  Sender: FDA-Public Use
  Company Number: US-PFIZER INC-2014311846

PATIENT
  Age: 85 Year
  Sex: Male

DRUGS (6)
  1. CELEBREX [Suspect]
     Active Substance: CELECOXIB
     Dosage: 400 MG, ONCE A DAY
     Dates: start: 201411
  2. LOXAPINE. [Concomitant]
     Active Substance: LOXAPINE SUCCINATE
     Dosage: 5 MG, ONCE A DAY BEDTIME
  3. CELEBREX [Suspect]
     Active Substance: CELECOXIB
     Indication: ARTHRALGIA
     Dosage: 200 MG, ONCE A DAY
  4. PAXIL [Concomitant]
     Active Substance: PAROXETINE HYDROCHLORIDE
     Dosage: 40 MG, MORNING
  5. DIGOXIN. [Concomitant]
     Active Substance: DIGOXIN
     Dosage: 0.5 MG, MORNING
  6. WARFARIN [Concomitant]
     Active Substance: WARFARIN
     Dosage: 10 MG, BEDTIME

REACTIONS (2)
  - Paraesthesia [Not Recovered/Not Resolved]
  - Pruritus [Not Recovered/Not Resolved]
